FAERS Safety Report 14527212 (Version 1)
Quarter: 2018Q1

REPORT INFORMATION
  Report Type: Spontaneous
  Country: JP (occurrence: JP)
  Receive Date: 20180213
  Receipt Date: 20180213
  Transmission Date: 20180509
  Serious: Yes (Other)
  Sender: FDA-Public Use
  Company Number: JP-PFIZER INC-2018060084

PATIENT

DRUGS (2)
  1. FOLIAMIN [Concomitant]
     Active Substance: FOLIC ACID
     Dosage: UNK UNK, WEEKLY,ON MONDAYS
     Route: 048
  2. RHEUMATREX [Suspect]
     Active Substance: METHOTREXATE SODIUM
     Dosage: 6 MG, WEEKLY(ON FRIDAY AND SATURDAY))
     Route: 048

REACTIONS (1)
  - Lumbar spinal stenosis [Unknown]
